FAERS Safety Report 13964692 (Version 1)
Quarter: 2017Q3

REPORT INFORMATION
  Report Type: Spontaneous
  Country: US (occurrence: US)
  Receive Date: 20170913
  Receipt Date: 20170913
  Transmission Date: 20171128
  Serious: No
  Sender: FDA-Public Use
  Company Number: US-JNJFOC-20170723953

PATIENT
  Age: 52 Year
  Sex: Male
  Weight: 58.97 kg

DRUGS (2)
  1. SIMPONI [Suspect]
     Active Substance: GOLIMUMAB
     Indication: PSORIASIS
     Route: 058
  2. SIMPONI [Suspect]
     Active Substance: GOLIMUMAB
     Indication: PSORIATIC ARTHROPATHY
     Route: 058

REACTIONS (5)
  - Inappropriate schedule of drug administration [Unknown]
  - Psoriasis [Unknown]
  - Needle issue [Unknown]
  - Drug dose omission [Unknown]
  - Arthralgia [Unknown]

NARRATIVE: CASE EVENT DATE: 201707
